FAERS Safety Report 5332744-1 (Version None)
Quarter: 2007Q2

REPORT INFORMATION
  Report Type: 
  Country: None (occurrence: None)
  Receive Date: 20070523
  Receipt Date: 20070514
  Transmission Date: 20071010
  Serious: Yes (Hospitalization, Other)
  Sender: FDA-Public Use
  Company Number: US-MERCK-0705USA02769

PATIENT
  Age: 66 Year
  Sex: Female

DRUGS (5)
  1. SINGULAIR [Suspect]
     Route: 048
  2. SINGULAIR [Suspect]
     Route: 048
  3. ADVAIR DISKUS 100/50 [Concomitant]
     Route: 065
  4. ZOLOFT [Concomitant]
     Route: 065
  5. MOBIC [Concomitant]
     Route: 065

REACTIONS (6)
  - ALANINE AMINOTRANSFERASE INCREASED [None]
  - ASPARTATE AMINOTRANSFERASE INCREASED [None]
  - PAIN [None]
  - PYREXIA [None]
  - STEVENS-JOHNSON SYNDROME [None]
  - VASCULITIS [None]
